FAERS Safety Report 9775682 (Version 1)
Quarter: 2013Q4

REPORT INFORMATION
  Report Type: Spontaneous
  Country: US (occurrence: US)
  Receive Date: 20131220
  Receipt Date: 20131220
  Transmission Date: 20140711
  Serious: No
  Sender: FDA-Public Use
  Company Number: US-B.I. PHARMACEUTICALS,INC./RIDGEFIELD-2013-BI-39241PF

PATIENT
  Sex: Male

DRUGS (15)
  1. SPIRIVA [Suspect]
  2. AMBIEN [Concomitant]
  3. COZAAR [Concomitant]
  4. LORTAB [Concomitant]
  5. PAXIL [Concomitant]
  6. PROVENTIL HFA [Concomitant]
  7. SYMBICORT [Concomitant]
  8. ASPIRIN [Concomitant]
  9. OMEPRAZOLE [Concomitant]
  10. FLEXERIL [Concomitant]
  11. TAMSULOSIN [Concomitant]
  12. CLARIN [Concomitant]
  13. LYRICA [Concomitant]
     Dosage: 300 MG
  14. MOBIC [Concomitant]
  15. VERAPAMIL [Concomitant]

REACTIONS (1)
  - Drug hypersensitivity [Unknown]
